FAERS Safety Report 9191462 (Version 2)
Quarter: 2013Q2

REPORT INFORMATION
  Report Type: Spontaneous
  Country: US (occurrence: US)
  Receive Date: 20130326
  Receipt Date: 20130415
  Transmission Date: 20140414
  Serious: Yes (Other)
  Sender: FDA-Public Use
  Company Number: US-GILEAD-2013-0071664

PATIENT
  Sex: Female

DRUGS (5)
  1. VISTIDE [Suspect]
     Indication: ADENOVIRUS INFECTION
     Dosage: 5 MG/KG, Q1WK
  2. OXYGEN [Concomitant]
  3. AMPICILLIN [Concomitant]
  4. GENTAMICIN [Concomitant]
  5. ACYCLOVIR                          /00587301/ [Concomitant]

REACTIONS (1)
  - Drug ineffective for unapproved indication [Not Recovered/Not Resolved]
